FAERS Safety Report 5875205-3 (Version None)
Quarter: 2008Q3

REPORT INFORMATION
  Report Type: 
  Country: None (occurrence: None)
  Receive Date: 20080904
  Receipt Date: 20080822
  Transmission Date: 20090109
  Serious: Yes (Death, Hospitalization, Other)
  Sender: FDA-Public Use
  Company Number: 2008US002220

PATIENT
  Age: 48 Year
  Sex: Male

DRUGS (5)
  1. PROGRAF [Suspect]
     Indication: LUNG TRANSPLANT
  2. AZATHIOPRINE [Suspect]
     Indication: LUNG TRANSPLANT
  3. PREDNISOLONE ACETATE [Suspect]
     Indication: LUNG TRANSPLANT
  4. SIROLIMUS (SIROLIMUS) [Concomitant]
  5. MYCOPHENOLATE MOFETIL [Concomitant]

REACTIONS (15)
  - ANAEMIA [None]
  - ASCITES [None]
  - ASPERGILLOSIS [None]
  - BRONCHOALVEOLAR LAVAGE ABNORMAL [None]
  - COLONOSCOPY ABNORMAL [None]
  - CULTURE POSITIVE [None]
  - CYTOMEGALOVIRUS INFECTION [None]
  - DIARRHOEA [None]
  - FAILURE TO THRIVE [None]
  - FORCED EXPIRATORY VOLUME DECREASED [None]
  - HERPES VIRUS INFECTION [None]
  - KAPOSI'S SARCOMA [None]
  - PANCYTOPENIA [None]
  - RENAL FAILURE ACUTE [None]
  - TRANSPLANT REJECTION [None]
